FAERS Safety Report 17471751 (Version 1)
Quarter: 2020Q1

REPORT INFORMATION
  Report Type: Spontaneous
  Country: US (occurrence: US)
  Receive Date: 20200228
  Receipt Date: 20200228
  Transmission Date: 20200409
  Serious: No
  Sender: FDA-Public Use
  Company Number: US-ASTRAZENECA-2020SE23100

PATIENT
  Sex: Male
  Weight: 90.7 kg

DRUGS (2)
  1. ASPIRIN. [Concomitant]
     Active Substance: ASPIRIN
  2. BRILINTA [Suspect]
     Active Substance: TICAGRELOR
     Indication: MYOCARDIAL INFARCTION
     Route: 048
     Dates: start: 201905

REACTIONS (5)
  - Headache [Unknown]
  - Abdominal pain upper [Unknown]
  - Dementia Alzheimer^s type [Unknown]
  - Nightmare [Unknown]
  - Fatigue [Unknown]
